FAERS Safety Report 10028434 (Version 1)
Quarter: 2014Q1

REPORT INFORMATION
  Report Type: Spontaneous
  Country: US (occurrence: None)
  Receive Date: 20140307
  Receipt Date: 20140307
  Transmission Date: 20141002
  Serious: Yes (Hospitalization)
  Sender: FDA-Public Use
  Company Number: DSU-2014-00453

PATIENT
  Age: 78 Year
  Sex: Male
  Weight: 88 kg

DRUGS (9)
  1. WELCHOL [Suspect]
     Indication: HYPERCHOLESTEROLAEMIA
     Route: 048
  2. METFORMIN (METFORMIN) [Concomitant]
  3. AMLODIPINE (AMLODIPINE) (AMLODIPINE) [Concomitant]
  4. JANUVIA (SITAGLIPTIN PHOSPHATE) (SITAGLIPTIN PHOSPHATE) [Concomitant]
  5. BAYER ASPIRIN (ACETYLSALICYLIC ACID) (ACETYLSALICYCLIC ACID) [Concomitant]
  6. TAMSULOSIN (TAMSULOSIN) (TAMSULOSIN) [Concomitant]
  7. HYDROCHLOROTHIAZIDE (HYDROCHLOROTHIAZIDE) (HYDROCHLOROTHIAZIDE) [Concomitant]
  8. ZYRTEC (CETIRIZINE HYDROCHLORIDE) (CETIRIZINE HYDROCHLORIDE) [Concomitant]
  9. LUPRON (LEUPRORELIN ACETATE) (INJECTION) (LEUPRORELIN ACETATE) [Concomitant]

REACTIONS (3)
  - Cerebrovascular accident [None]
  - Blood glucose decreased [None]
  - Renal failure [None]
